FAERS Safety Report 9705576 (Version 2)
Quarter: 2015Q3

REPORT INFORMATION
  Report Type: Spontaneous
  Country: US (occurrence: US)
  Receive Date: 20131122
  Receipt Date: 20150803
  Transmission Date: 20151125
  Serious: No
  Sender: FDA-Public Use
  Company Number: US-GILEAD-2008-0017042

PATIENT
  Age: 91 Year
  Sex: Female
  Weight: 68.04 kg

DRUGS (15)
  1. LISINOPRIL. [Concomitant]
     Active Substance: LISINOPRIL
     Route: 048
  2. LETAIRIS [Suspect]
     Active Substance: AMBRISENTAN
     Indication: PULMONARY ARTERIAL HYPERTENSION
     Route: 048
     Dates: start: 20080523
  3. REVATIO [Concomitant]
     Active Substance: SILDENAFIL CITRATE
     Route: 048
  4. PROCARDIA XL [Concomitant]
     Active Substance: NIFEDIPINE
     Route: 048
  5. FOSAMAX [Concomitant]
     Active Substance: ALENDRONATE SODIUM
     Route: 048
  6. MULTIVITAMIN [Concomitant]
     Active Substance: VITAMINS
     Route: 048
  7. LASIX [Concomitant]
     Active Substance: FUROSEMIDE
     Route: 048
  8. CELEBREX [Concomitant]
     Active Substance: CELECOXIB
     Route: 048
  9. VICODIN [Concomitant]
     Active Substance: ACETAMINOPHEN\HYDROCODONE BITARTRATE
     Route: 048
  10. ASPRIN [Concomitant]
     Active Substance: ASPIRIN
     Route: 048
  11. OXYBUTYNIN [Concomitant]
     Active Substance: OXYBUTYNIN
     Route: 048
  12. CALCARB [Concomitant]
     Route: 048
  13. COUMADIN [Concomitant]
     Active Substance: WARFARIN SODIUM
     Route: 048
  14. THEOPHYLLINE [Concomitant]
     Active Substance: THEOPHYLLINE ANHYDROUS
     Route: 048
  15. TRACLEER [Concomitant]
     Active Substance: BOSENTAN
     Route: 048

REACTIONS (3)
  - Nausea [None]
  - Dizziness [None]
  - Malaise [None]
